FAERS Safety Report 9731831 (Version 3)
Quarter: 2013Q4

REPORT INFORMATION
  Report Type: Report from Study
  Country: FR (occurrence: FR)
  Receive Date: 20131205
  Receipt Date: 20131217
  Transmission Date: 20140711
  Serious: Yes (Death, Disabling, Other)
  Sender: FDA-Public Use
  Company Number: FR-MILLENNIUM PHARMACEUTICALS, INC.-2013-03306

PATIENT
  Sex: 0

DRUGS (3)
  1. VELCADE [Suspect]
     Indication: PLASMA CELL MYELOMA
     Dosage: 2.8 MG, UNK
     Route: 042
     Dates: start: 20121203, end: 20130225
  2. VELCADE [Suspect]
     Dosage: 2.1 MG, UNK
     Route: 042
     Dates: start: 20130228, end: 20130307
  3. DEXAMETHASONE [Suspect]
     Indication: PLASMA CELL MYELOMA
     Dosage: 20 MG, UNK
     Route: 048
     Dates: start: 20121203, end: 20130307

REACTIONS (6)
  - Cognitive disorder [Fatal]
  - Nutritional condition abnormal [Fatal]
  - Malnutrition [Fatal]
  - Infection [Fatal]
  - Neuropathy peripheral [Recovered/Resolved]
  - Disability [Unknown]
